FAERS Safety Report 25210712 (Version 1)
Quarter: 2025Q2

REPORT INFORMATION
  Report Type: Spontaneous
  Country: US (occurrence: US)
  Receive Date: 20250417
  Receipt Date: 20250417
  Transmission Date: 20250716
  Serious: No
  Sender: INSUD PHARMA
  Company Number: US-INSUD PHARMA-2503US02601

PATIENT

DRUGS (1)
  1. SLYND [Suspect]
     Active Substance: DROSPIRENONE
     Indication: Product used for unknown indication
     Route: 048
     Dates: start: 202502, end: 20250328

REACTIONS (4)
  - Blood pressure decreased [Unknown]
  - Presyncope [Unknown]
  - Tunnel vision [Unknown]
  - Anxiety [Recovered/Resolved]

NARRATIVE: CASE EVENT DATE: 20250201
